FAERS Safety Report 11313578 (Version 3)
Quarter: 2021Q2

REPORT INFORMATION
  Report Type: Spontaneous
  Country: US (occurrence: US)
  Receive Date: 20150727
  Receipt Date: 20210514
  Transmission Date: 20210716
  Serious: No
  Sender: FDA-Public Use
  Company Number: US-PFIZER INC-2015245144

PATIENT
  Age: 59 Year
  Sex: Male

DRUGS (3)
  1. LOPID [Concomitant]
     Active Substance: GEMFIBROZIL
  2. NORVASC [Concomitant]
     Active Substance: AMLODIPINE BESYLATE
  3. LYRICA [Suspect]
     Active Substance: PREGABALIN
     Indication: NEUROPATHY PERIPHERAL
     Dosage: 75 MG, 3X/DAY
     Route: 048

REACTIONS (2)
  - Pain in extremity [Unknown]
  - Condition aggravated [Unknown]
